FAERS Safety Report 17687936 (Version 1)
Quarter: 2020Q2

REPORT INFORMATION
  Report Type: Spontaneous
  Country: US (occurrence: US)
  Receive Date: 20200421
  Receipt Date: 20200421
  Transmission Date: 20200714
  Serious: Yes (Hospitalization)
  Sender: FDA-Public Use
  Company Number: NVSC2020US104250

PATIENT
  Age: 53 Year
  Sex: Female

DRUGS (4)
  1. LINEZOLID. [Suspect]
     Active Substance: LINEZOLID
     Indication: PERITONITIS
     Dosage: 600 MG, Q12H INTRAVENOUS PIGGYBACK
     Route: 042
  2. MEROPENEM. [Concomitant]
     Active Substance: MEROPENEM
     Indication: PERITONITIS
     Dosage: 1 G, Q8H IVPB
     Route: 042
  3. LINEZOLID. [Suspect]
     Active Substance: LINEZOLID
     Dosage: UNK
     Route: 048
  4. ERTAPENEM. [Concomitant]
     Active Substance: ERTAPENEM SODIUM
     Indication: PERITONITIS
     Dosage: 1 G, Q12H, IVPB
     Route: 042

REACTIONS (4)
  - Hypoglycaemia [Unknown]
  - Toxicity to various agents [Recovering/Resolving]
  - Pancreatitis [Unknown]
  - Metabolic acidosis [Unknown]
